FAERS Safety Report 9210966 (Version 1)
Quarter: 2013Q2

REPORT INFORMATION
  Report Type: Report from Study
  Country: BE (occurrence: BE)
  Receive Date: 20130404
  Receipt Date: 20130404
  Transmission Date: 20140414
  Serious: Yes (Life-Threatening, Hospitalization)
  Sender: FDA-Public Use
  Company Number: BE-TEVA-396329USA

PATIENT
  Age: 74 Year
  Sex: Male
  Weight: 91.3 kg

DRUGS (11)
  1. TREANDA [Suspect]
     Indication: NON-HODGKIN^S LYMPHOMA
     Dosage: EVERY FOUR WEEKS
     Route: 042
     Dates: start: 20110725
  2. TREANDA [Suspect]
     Route: 042
     Dates: start: 20110726
  3. TREANDA [Suspect]
     Dosage: EVERY FOUR WEEKS
     Route: 042
     Dates: start: 20110822
  4. OBINUTUZUMAB [Suspect]
     Indication: NON-HODGKIN^S LYMPHOMA
     Dosage: EVERY FOUR WEEKS
     Route: 042
     Dates: start: 20110725
  5. OBINUTUZUMAB [Suspect]
     Dosage: EVERY FOUR WEEKS
     Route: 042
     Dates: start: 20110822
  6. ZYLORIC [Concomitant]
     Dates: start: 20110725, end: 20110801
  7. ZYLORIC [Concomitant]
     Dates: start: 20111124
  8. XALATAN [Concomitant]
     Indication: GLAUCOMA
     Dates: start: 201107, end: 20111205
  9. AVELOX [Concomitant]
     Indication: COUGH
     Dates: start: 201205, end: 20120530
  10. AMOXICILLIN [Concomitant]
     Indication: COUGH
     Dates: start: 201207, end: 201207
  11. PARACODEINE [Concomitant]
     Indication: COUGH
     Dates: start: 20120531, end: 20120726

REACTIONS (4)
  - Anaphylactic shock [Recovered/Resolved]
  - Atrial fibrillation [Recovered/Resolved]
  - Infusion related reaction [Recovered/Resolved]
  - Diarrhoea [Recovered/Resolved]
